FAERS Safety Report 10381495 (Version 1)
Quarter: 2014Q3

REPORT INFORMATION
  Report Type: Spontaneous
  Country: US (occurrence: None)
  Receive Date: 20140811
  Receipt Date: 20140811
  Transmission Date: 20150326
  Serious: Yes (Death, Other)
  Sender: FDA-Public Use
  Company Number: 2014AP003825

PATIENT
  Age: 0 Day
  Sex: Male
  Weight: 3.9 kg

DRUGS (1)
  1. PAXIL [Suspect]
     Active Substance: PAROXETINE HYDROCHLORIDE
     Indication: DEPRESSION
     Route: 064

REACTIONS (6)
  - Hypertrophic cardiomyopathy [None]
  - Bicuspid aortic valve [None]
  - Congenital aortic valve incompetence [None]
  - Congenital aortic dilatation [None]
  - Neonatal cardiac failure [None]
  - Foetal exposure during pregnancy [None]

NARRATIVE: CASE EVENT DATE: 20020119
